FAERS Safety Report 7065751-1 (Version None)
Quarter: 2010Q4

REPORT INFORMATION
  Report Type: 
  Country: None (occurrence: None)
  Receive Date: 20101027
  Receipt Date: 20101014
  Transmission Date: 20110411
  Serious: Yes (Death, Hospitalization, Other)
  Sender: FDA-Public Use
  Company Number: US-SANOFI-AVENTIS-2010SA055033

PATIENT
  Sex: Male

DRUGS (3)
  1. MULTAQ [Suspect]
     Indication: ATRIAL FIBRILLATION
     Route: 048
     Dates: start: 20100801, end: 20100901
  2. COUMADIN [Suspect]
     Route: 065
     Dates: start: 20100801, end: 20100801
  3. LABETALOL HCL [Concomitant]

REACTIONS (4)
  - HEPATIC ENZYME INCREASED [None]
  - HYPOTENSION [None]
  - INTERNATIONAL NORMALISED RATIO INCREASED [None]
  - SEPTIC SHOCK [None]
